FAERS Safety Report 4612895-7 (Version None)
Quarter: 2005Q1

REPORT INFORMATION
  Report Type: 
  Country: None (occurrence: None)
  Receive Date: 20050318
  Receipt Date: 20041227
  Transmission Date: 20050727
  Serious: Yes (Other)
  Sender: FDA-Public Use
  Company Number: JP-GLAXOSMITHKLINE-B0362962A

PATIENT
  Age: 80 Year
  Sex: Male
  Weight: 40 kg

DRUGS (1)
  1. VALTREX [Suspect]
     Indication: HERPES ZOSTER
     Route: 048
     Dates: start: 20041220, end: 20041222

REACTIONS (2)
  - HALLUCINATION [None]
  - NERVOUS SYSTEM DISORDER [None]
